FAERS Safety Report 16697406 (Version 4)
Quarter: 2020Q2

REPORT INFORMATION
  Report Type: Spontaneous
  Country: US (occurrence: US)
  Receive Date: 20190813
  Receipt Date: 20200512
  Transmission Date: 20200713
  Serious: Yes (Hospitalization)
  Sender: FDA-Public Use
  Company Number: US-JNJFOC-20190811379

PATIENT
  Age: 72 Year
  Sex: Male

DRUGS (5)
  1. OXYCODONE [Concomitant]
     Active Substance: OXYCODONE
     Indication: PAIN MANAGEMENT
     Route: 065
     Dates: start: 201801
  2. ZYTIGA [Suspect]
     Active Substance: ABIRATERONE ACETATE
     Indication: PROSTATE CANCER
     Route: 048
     Dates: start: 20191118, end: 2019
  3. ZYTIGA [Suspect]
     Active Substance: ABIRATERONE ACETATE
     Route: 048
     Dates: end: 20200303
  4. MIRTAZAPINE. [Concomitant]
     Active Substance: MIRTAZAPINE
     Indication: ANXIETY
     Route: 065
     Dates: start: 201911
  5. GABAPENTIN. [Concomitant]
     Active Substance: GABAPENTIN
     Indication: NEURALGIA
     Route: 065

REACTIONS (6)
  - Disorientation [Not Recovered/Not Resolved]
  - Pneumonia [Not Recovered/Not Resolved]
  - Myalgia [Not Recovered/Not Resolved]
  - Pyrexia [Not Recovered/Not Resolved]
  - Bone pain [Not Recovered/Not Resolved]
  - Incorrect dose administered [Unknown]

NARRATIVE: CASE EVENT DATE: 20200103
